FAERS Safety Report 25450411 (Version 1)
Quarter: 2025Q2

REPORT INFORMATION
  Report Type: Spontaneous
  Country: US (occurrence: US)
  Receive Date: 20250618
  Receipt Date: 20250618
  Transmission Date: 20250716
  Serious: No
  Sender: MERCK SHARP & DOHME LLC
  Company Number: US-009507513-2290472

PATIENT
  Age: 26 Year
  Sex: Male

DRUGS (3)
  1. ERTAPENEM [Suspect]
     Active Substance: ERTAPENEM
     Indication: Prosthetic valve endocarditis
  2. CEFAZOLIN [Concomitant]
     Active Substance: CEFAZOLIN
     Indication: Staphylococcal infection
  3. NAFCILLIN [Concomitant]
     Active Substance: NAFCILLIN SODIUM
     Indication: Prosthetic valve endocarditis

REACTIONS (1)
  - Off label use [Unknown]
